FAERS Safety Report 7438804-3 (Version None)
Quarter: 2011Q2

REPORT INFORMATION
  Report Type: 
  Country: None (occurrence: None)
  Receive Date: 20110426
  Receipt Date: 20110413
  Transmission Date: 20111010
  Serious: Yes (Hospitalization)
  Sender: FDA-Public Use
  Company Number: FR-GENENTECH-297087

PATIENT
  Sex: Female

DRUGS (17)
  1. RITUXIMAB [Suspect]
     Dosage: 965 MG, QAM
     Route: 041
     Dates: start: 20090624, end: 20090624
  2. ZELITREX [Concomitant]
     Indication: INFECTION PROPHYLAXIS
     Dosage: 500 MG, BID
  3. CLAMOXYL [Concomitant]
     Indication: ERYTHEMA
     Dosage: 3 G, UNK
     Dates: start: 20090807
  4. NEXIUM [Concomitant]
     Indication: GASTRIC ULCER
     Dosage: 20 MG, QAM
  5. HYPERIUM [Concomitant]
     Indication: PRODUCT USED FOR UNKNOWN INDICATION
  6. RITUXIMAB [Suspect]
     Indication: B-CELL SMALL LYMPHOCYTIC LYMPHOMA STAGE II
     Dosage: 725 MG, UNK
     Route: 041
     Dates: start: 20090608
  7. ZYLORIC [Concomitant]
     Indication: HYPERURICAEMIA
     Dosage: 300 MG, QAM
  8. ZESTORETIC [Concomitant]
     Indication: HYPERTENSION
     Dosage: UNK UNK, QAM
  9. SULFAMETHOXAZOLE/TRIMETHOPRIM [Suspect]
     Indication: ANTIBIOTIC THERAPY
     Dosage: 800 MG, 3/WEEK
     Route: 002
     Dates: start: 20090601, end: 20090722
  10. BACTRIM [Concomitant]
     Indication: PRODUCT USED FOR UNKNOWN INDICATION
  11. RITUXIMAB [Suspect]
     Dosage: 965 MG, QAM
     Route: 041
     Dates: start: 20090904
  12. CYCLOPHOSPHAMIDE [Suspect]
     Indication: NEOPLASM MALIGNANT
     Dosage: 500 MG, QAM
     Route: 002
     Dates: start: 20090609, end: 20090611
  13. COTAREG [Concomitant]
     Indication: PRODUCT USED FOR UNKNOWN INDICATION
     Dosage: UNK
     Dates: start: 20091106
  14. CYCLOPHOSPHAMIDE [Suspect]
     Dosage: 500 MG, QAM
     Route: 002
     Dates: start: 20090904, end: 20090906
  15. FLUDARABINE [Suspect]
     Indication: CHRONIC LYMPHOCYTIC LEUKAEMIA
     Dosage: 80 MG, QAM
     Route: 002
     Dates: start: 20090609, end: 20090611
  16. FLUDARABINE [Suspect]
     Dosage: 80 MG, QAM
     Route: 002
     Dates: start: 20090904, end: 20090906
  17. KARDEGIC [Concomitant]
     Indication: CARDIOVASCULAR EVENT PROPHYLAXIS
     Dosage: 75 MG, QAM
     Dates: start: 20091106

REACTIONS (4)
  - BRONCHOPNEUMOPATHY [None]
  - FEBRILE NEUTROPENIA [None]
  - AGRANULOCYTOSIS [None]
  - FUNGAL INFECTION [None]
